FAERS Safety Report 9770770 (Version 1)
Quarter: 2013Q4

REPORT INFORMATION
  Report Type: Spontaneous
  Country: US (occurrence: US)
  Receive Date: 20131218
  Receipt Date: 20131218
  Transmission Date: 20140711
  Serious: No
  Sender: FDA-Public Use
  Company Number: US-PFIZER INC-2013361602

PATIENT
  Sex: Male

DRUGS (3)
  1. LIPITOR [Suspect]
     Dosage: 5 MG (BY CUTTING 10MG INTO HALF), ALTERNATE DAY
     Route: 048
  2. LIPITOR [Suspect]
     Dosage: 10 MG, ALTERNATE DAY
     Route: 048
  3. LIPITOR [Suspect]
     Dosage: UNK (HIGHER THAN 10MG), ALTERNATE DAY
     Route: 048

REACTIONS (2)
  - Inappropriate schedule of drug administration [Unknown]
  - Muscle spasms [Unknown]
